FAERS Safety Report 25115157 (Version 2)
Quarter: 2025Q2

REPORT INFORMATION
  Report Type: Spontaneous
  Country: US (occurrence: US)
  Receive Date: 20250324
  Receipt Date: 20250407
  Transmission Date: 20250716
  Serious: No
  Sender: MERCK SHARP AND DOHME
  Company Number: US-009507513-2263291

PATIENT
  Sex: Female

DRUGS (4)
  1. KEYTRUDA [Suspect]
     Active Substance: PEMBROLIZUMAB
     Dosage: EVERY 3 WEEKS
     Route: 065
  2. KEYTRUDA [Suspect]
     Active Substance: PEMBROLIZUMAB
     Dosage: EVERY 3 WEEKS
     Route: 065
     Dates: end: 202403
  3. IBUPROFEN [Concomitant]
     Active Substance: IBUPROFEN
     Route: 065
  4. LENVATINIB [Concomitant]
     Active Substance: LENVATINIB
     Route: 065

REACTIONS (9)
  - Proctitis [Unknown]
  - Feeling abnormal [Unknown]
  - Fatigue [Unknown]
  - Viral infection [Unknown]
  - Inflammation [Unknown]
  - Gastrointestinal disorder [Not Recovered/Not Resolved]
  - Gastrointestinal infection [Not Recovered/Not Resolved]
  - Movement disorder [Not Recovered/Not Resolved]
  - Weight decreased [Unknown]

NARRATIVE: CASE EVENT DATE: 20250301
